FAERS Safety Report 7886127-0 (Version None)
Quarter: 2011Q4

REPORT INFORMATION
  Report Type: 
  Country: None (occurrence: None)
  Receive Date: 20111102
  Receipt Date: 20110627
  Transmission Date: 20120403
  Serious: No
  Sender: FDA-Public Use
  Company Number: US-AMGEN-USASP2011023307

PATIENT
  Age: 71 Year
  Sex: Female

DRUGS (4)
  1. ENBREL [Suspect]
     Indication: RHEUMATOID ARTHRITIS
     Dosage: 50 MG, QWK
     Dates: start: 20110426
  2. PLAQUENIL [Concomitant]
  3. TREXALL [Concomitant]
  4. AZULFIDINE [Concomitant]

REACTIONS (6)
  - SOMNOLENCE [None]
  - FATIGUE [None]
  - SCIATICA [None]
  - PYREXIA [None]
  - HERPES ZOSTER [None]
  - RHEUMATOID ARTHRITIS [None]
